FAERS Safety Report 14840641 (Version 1)
Quarter: 2020Q3

REPORT INFORMATION
  Report Type: Report from Study
  Country: FR (occurrence: FR)
  Receive Date: 20180503
  Receipt Date: 20180503
  Transmission Date: 20201104
  Serious: Yes (Death, Hospitalization)
  Sender: FDA-Public Use
  Company Number: FR-TEVA-2018-FR-887568

PATIENT
  Age: 43 Year
  Sex: Male
  Weight: 95 kg

DRUGS (10)
  1. CACIT (FRANCE) [Concomitant]
     Route: 065
  2. CERITINIB [Concomitant]
     Active Substance: CERITINIB
     Route: 065
  3. CRIZOTINIB [Concomitant]
     Active Substance: CRIZOTINIB
     Route: 065
  4. ESOMEPRAZOLE. [Concomitant]
     Active Substance: ESOMEPRAZOLE MAGNESIUM
     Route: 065
  5. VIMPAT [Concomitant]
     Active Substance: LACOSAMIDE
     Dosage: 150 MILLIGRAM DAILY;
     Route: 065
  6. DUROGESIC [Concomitant]
     Active Substance: FENTANYL
     Route: 065
  7. DIFFU K [Concomitant]
     Active Substance: POTASSIUM CHLORIDE
     Dosage: 1 DOSAGE FORMS DAILY;
     Route: 065
  8. PREDNISOLONE. [Suspect]
     Active Substance: PREDNISOLONE
     Dosage: 15 MILLIGRAM DAILY;
     Route: 065
  9. ALECTINIB. [Suspect]
     Active Substance: ALECTINIB
     Indication: NON-SMALL CELL LUNG CANCER METASTATIC
     Route: 048
  10. METFORMINE MYLAN [Concomitant]
     Active Substance: METFORMIN HYDROCHLORIDE
     Route: 065

REACTIONS (2)
  - Gastrointestinal perforation [Fatal]
  - Haematoma [Fatal]
